FAERS Safety Report 15269395 (Version 1)
Quarter: 2018Q3

REPORT INFORMATION
  Report Type: Spontaneous
  Country: US (occurrence: US)
  Receive Date: 20180813
  Receipt Date: 20180813
  Transmission Date: 20181010
  Serious: No
  Sender: FDA-Public Use
  Company Number: US-CELLTRION INC.-2018US019528

PATIENT

DRUGS (1)
  1. INFLECTRA [Suspect]
     Active Substance: INFLIXIMAB-DYYB
     Indication: PSORIATIC ARTHROPATHY
     Dosage: 5 VIALS EVERY 8 WEEKS
     Route: 065
     Dates: start: 20180507, end: 20180507

REACTIONS (2)
  - Drug prescribing error [Unknown]
  - Underdose [Unknown]
